FAERS Safety Report 4332929-7 (Version None)
Quarter: 2004Q2

REPORT INFORMATION
  Report Type: 
  Country: None (occurrence: None)
  Receive Date: 20040405
  Receipt Date: 20040405
  Transmission Date: 20050107
  Serious: Yes (Hospitalization)
  Sender: FDA-Public Use
  Company Number: None

PATIENT
  Sex: Female
  Weight: 67.1324 kg

DRUGS (1)
  1. BENICAR HCT [Suspect]
     Indication: HYPERTENSION
     Dosage: 1 AM DAY
     Dates: start: 20040202, end: 20040228

REACTIONS (6)
  - ANXIETY [None]
  - CHEST PAIN [None]
  - DYSSTASIA [None]
  - FEELING ABNORMAL [None]
  - PAIN [None]
  - TREMOR [None]
